FAERS Safety Report 7889643-0 (Version None)
Quarter: 2011Q4

REPORT INFORMATION
  Report Type: 
  Country: None (occurrence: None)
  Receive Date: 20111103
  Receipt Date: 20111028
  Transmission Date: 20120403
  Serious: Yes (Death, Other)
  Sender: FDA-Public Use
  Company Number: GB-TEVA-306340ISR

PATIENT
  Age: 80 Year
  Sex: Female

DRUGS (23)
  1. CITALOPRAM HYDROBROMIDE [Concomitant]
     Dosage: 20 MG, QD
     Route: 048
  2. CITALOPRAM HYDROBROMIDE [Concomitant]
     Dosage: 10 MG, QD
     Route: 048
  3. MADOPAR [Concomitant]
     Dosage: 125 MG/DAY (MORNING)
     Route: 048
  4. STALEVO 100 [Concomitant]
     Dosage: 5 DF/DAY
  5. MOVIPREP [Concomitant]
     Dosage: 1 SACHET/DAY
     Route: 048
  6. SLOW-K [Concomitant]
     Dosage: 100 X 2 TABLET DAILY
  7. OMEPRAZOLE [Concomitant]
     Dosage: 20 MG/DAY
     Route: 048
  8. ACETAMINOPHEN [Concomitant]
     Dosage: 4000 MG, UNK
  9. HYPROMELLOSE [Concomitant]
     Dosage: 1 DF, PRN
  10. FERROUS SULFATE TAB [Concomitant]
     Dosage: 200 MG, TID
  11. FUROSEMIDE [Concomitant]
     Dosage: 40 MG, QD (MORNING)
  12. SINEMET CR [Concomitant]
     Dosage: 1/2 TABLET/DAY
     Route: 048
  13. EPADERM [Concomitant]
     Dosage: UNK DF, PRN
  14. DIAZEPAM [Suspect]
  15. LAXIDO [Concomitant]
     Dosage: 1 SACHET, QD
  16. AMOXICILLIN [Concomitant]
     Dosage: 500 MG, TID
  17. CITRIC ACID [Concomitant]
     Dosage: 4 ML, PRN
  18. VALOID [Concomitant]
     Dosage: 1 DF, TID
     Route: 030
  19. TRIMETHOPRIM [Concomitant]
     Dosage: 200 MG, BID
  20. SINEMET [Concomitant]
  21. CLOZARIL [Suspect]
     Indication: PARKINSON'S DISEASE
     Dosage: 50 MG/DAY
     Route: 048
     Dates: start: 20110118
  22. FUROSEMIDE [Concomitant]
     Dosage: 20 MG, QD (MORNING)
  23. DICLOFENAC [Concomitant]
     Dosage: 50 MG, TID

REACTIONS (11)
  - CARDIAC DISORDER [None]
  - CEREBROVASCULAR ACCIDENT [None]
  - KLEBSIELLA BACTERAEMIA [None]
  - DEMENTIA [None]
  - WHITE BLOOD CELL COUNT INCREASED [None]
  - GASTROINTESTINAL CARCINOMA [None]
  - BLOOD CREATININE INCREASED [None]
  - DRUG INEFFECTIVE [None]
  - ASTHENIA [None]
  - NEUTROPHIL COUNT INCREASED [None]
  - BLOOD POTASSIUM DECREASED [None]
